FAERS Safety Report 8300914-6 (Version None)
Quarter: 2012Q2

REPORT INFORMATION
  Report Type: 
  Country: None (occurrence: None)
  Receive Date: 20120420
  Receipt Date: 20120417
  Transmission Date: 20120825
  Serious: Yes (Death, Life-Threatening, Hospitalization)
  Sender: FDA-Public Use
  Company Number: BE-SANOFI-AVENTIS-2012SA026573

PATIENT
  Age: 68 Year
  Sex: Male
  Weight: 84 kg

DRUGS (6)
  1. OXYCODONE HCL [Concomitant]
     Indication: DRUG THERAPY
     Route: 048
     Dates: start: 20120101
  2. CABAZITAXEL [Suspect]
     Indication: PROSTATE CANCER METASTATIC
     Route: 042
     Dates: start: 20120410, end: 20120410
  3. ZOMETA [Concomitant]
     Indication: DRUG THERAPY
     Route: 042
     Dates: start: 20120329
  4. MEDROL [Concomitant]
     Route: 048
     Dates: start: 20120404, end: 20120410
  5. FRAXIPARIN [Concomitant]
     Indication: PROPHYLAXIS
     Route: 058
     Dates: start: 20120201
  6. PREDNISONE TAB [Suspect]
     Indication: PROSTATE CANCER METASTATIC
     Route: 048
     Dates: start: 20120410, end: 20120410

REACTIONS (2)
  - NEUTROPENIC SEPSIS [None]
  - ACCIDENTAL OVERDOSE [None]
